FAERS Safety Report 12101755 (Version 1)
Quarter: 2016Q1

REPORT INFORMATION
  Report Type: Spontaneous
  Country: NO (occurrence: NO)
  Receive Date: 20160222
  Receipt Date: 20160222
  Transmission Date: 20160526
  Serious: Yes (Life-Threatening, Disabling, Other)
  Sender: FDA-Public Use
  Company Number: PHHY2016NO020584

PATIENT
  Age: 24 Year
  Sex: Male
  Weight: 50 kg

DRUGS (1)
  1. RISPERIDONE. [Suspect]
     Active Substance: RISPERIDONE
     Indication: PSYCHOTIC DISORDER
     Dosage: 66,96
     Route: 065
     Dates: start: 20150905, end: 20160106

REACTIONS (3)
  - Anxiety [Recovered/Resolved with Sequelae]
  - Anger [Recovered/Resolved with Sequelae]
  - Cerebral haemorrhage [Unknown]

NARRATIVE: CASE EVENT DATE: 20151005
